FAERS Safety Report 9756662 (Version 1)
Quarter: 2013Q4

REPORT INFORMATION
  Report Type: Spontaneous
  Country: DK (occurrence: FR)
  Receive Date: 20131213
  Receipt Date: 20131213
  Transmission Date: 20140711
  Serious: Yes (Hospitalization)
  Sender: FDA-Public Use
  Company Number: FR-FRI-1000052206

PATIENT
  Age: 68 Year
  Sex: Male

DRUGS (4)
  1. ESCITALOPRAM [Suspect]
     Dosage: 1 DF
     Route: 048
  2. FLUANXOL [Interacting]
     Dosage: 120 DF
     Route: 048
  3. LEPONEX [Interacting]
     Dosage: 1 DF
     Route: 048
  4. XATRAL [Interacting]
     Dosage: 1 DF
     Route: 048

REACTIONS (2)
  - Orthostatic hypotension [Recovered/Resolved]
  - Drug interaction [Recovered/Resolved]
